FAERS Safety Report 5199500-9 (Version None)
Quarter: 2006Q4

REPORT INFORMATION
  Report Type: 
  Country: None (occurrence: None)
  Receive Date: 20061229
  Receipt Date: 20061219
  Transmission Date: 20070319
  Serious: Yes (Life-Threatening)
  Sender: FDA-Public Use
  Company Number: CIP06003003

PATIENT
  Sex: Male

DRUGS (2)
  1. RISEDRONATE SODIUM [Suspect]
     Indication: OSTEOPOROSIS
     Dosage: 2.5 MG DAILY, ORAL
     Route: 048
     Dates: start: 20060901, end: 20061214
  2. NORVASC [Concomitant]

REACTIONS (3)
  - HAEMORRHAGE SUBCUTANEOUS [None]
  - PLATELET COUNT DECREASED [None]
  - PURPURA [None]
